FAERS Safety Report 14175424 (Version 2)
Quarter: 2017Q4

REPORT INFORMATION
  Report Type: Report from Study
  Country: FR (occurrence: FR)
  Receive Date: 20171109
  Receipt Date: 20171113
  Transmission Date: 20180321
  Serious: Yes (Other)
  Sender: FDA-Public Use
  Company Number: PHHY2017FR164100

PATIENT
  Age: 51 Year
  Sex: Male
  Weight: 61 kg

DRUGS (3)
  1. ZARZIO [Suspect]
     Active Substance: FILGRASTIM
     Indication: NEUTROPENIA
     Dosage: 30 IU, UNK
     Route: 058
     Dates: start: 20171021, end: 20171028
  2. TAXOL [Concomitant]
     Active Substance: PACLITAXEL
     Indication: NEOPLASM MALIGNANT
     Dosage: 136 UNK, UNK
     Route: 065
     Dates: start: 20171019, end: 20171025
  3. TAXOL [Concomitant]
     Active Substance: PACLITAXEL
     Dosage: 138 MG, UNK
     Route: 065
     Dates: start: 20171025

REACTIONS (3)
  - Dyspnoea [Recovered/Resolved]
  - Dyspnoea [Recovered/Resolved]
  - Anxiety [Unknown]

NARRATIVE: CASE EVENT DATE: 20171022
